FAERS Safety Report 11398096 (Version 1)
Quarter: 2015Q3

REPORT INFORMATION
  Report Type: Spontaneous
  Country: US (occurrence: US)
  Receive Date: 20150820
  Receipt Date: 20150820
  Transmission Date: 20151125
  Serious: Yes (Other)
  Sender: FDA-Public Use
  Company Number: US-ROCHE-1622133

PATIENT
  Age: 56 Year
  Sex: Female

DRUGS (1)
  1. XOLAIR [Suspect]
     Active Substance: OMALIZUMAB
     Indication: ASTHMA
     Route: 058
     Dates: start: 20150716, end: 20150730

REACTIONS (3)
  - Hyperhidrosis [Unknown]
  - Rash [Unknown]
  - Dyspnoea [Unknown]

NARRATIVE: CASE EVENT DATE: 20150730
